FAERS Safety Report 6785552-9 (Version None)
Quarter: 2010Q2

REPORT INFORMATION
  Report Type: 
  Country: None (occurrence: None)
  Receive Date: 20100623
  Receipt Date: 20100607
  Transmission Date: 20101027
  Serious: Yes (Hospitalization)
  Sender: FDA-Public Use
  Company Number: AU-BAYER-200927041GPV

PATIENT
  Age: 48 Year
  Sex: Male
  Weight: 115 kg

DRUGS (22)
  1. SORAFENIB [Suspect]
     Indication: RENAL CELL CARCINOMA
     Dosage: TOTAL DAILY DOSE: 800 MG
     Route: 048
     Dates: start: 20100518
  2. SORAFENIB [Suspect]
     Dosage: TOTAL DAILY DOSE: 800 MG
     Route: 048
     Dates: start: 20091224, end: 20100424
  3. SORAFENIB [Suspect]
     Dosage: TOTAL DAILY DOSE: 600 MG
     Route: 048
     Dates: start: 20091030, end: 20091223
  4. SORAFENIB [Suspect]
     Route: 048
     Dates: start: 20090904, end: 20091029
  5. SORAFENIB [Suspect]
     Route: 048
     Dates: start: 20090618, end: 20090729
  6. SORAFENIB [Suspect]
     Dosage: TOTAL DAILY DOSE: 800 MG
     Route: 048
     Dates: start: 20090511, end: 20090601
  7. CARDIPRIN [Concomitant]
     Indication: PROPHYLAXIS
     Route: 048
     Dates: end: 20090728
  8. MICARDIS [Concomitant]
     Indication: HYPERTENSION
     Route: 048
  9. MICARDIS [Concomitant]
     Route: 048
  10. CRESTOR [Concomitant]
     Indication: HYPERLIPIDAEMIA
     Route: 048
  11. CRESTOR [Concomitant]
     Route: 048
  12. METOCLOPRAMIDE [Concomitant]
     Indication: PROPHYLAXIS
     Route: 048
     Dates: start: 20090713
  13. ATACAND [Concomitant]
     Indication: HYPERTENSION
     Route: 048
  14. COLOXYL WITH SENNA [Concomitant]
     Indication: CONSTIPATION
     Route: 048
     Dates: start: 20090711
  15. LACTULOSE [Concomitant]
     Indication: CONSTIPATION
     Route: 048
     Dates: start: 20090711
  16. NULYTELY [Concomitant]
     Indication: CONSTIPATION
     Route: 048
     Dates: start: 20090711, end: 20090717
  17. ATENOLOL [Concomitant]
     Indication: HYPERTENSION
     Route: 048
  18. ASPIRIN [Concomitant]
     Indication: PROPHYLAXIS
     Route: 048
  19. NEXIUM [Concomitant]
     Indication: GASTROOESOPHAGEAL REFLUX DISEASE
     Route: 048
  20. MULTI-VITAMIN [Concomitant]
     Indication: SUPPLEMENTATION THERAPY
  21. VITAMIN B [Concomitant]
     Indication: PALMAR-PLANTAR ERYTHRODYSAESTHESIA SYNDROME
  22. FISH OIL [Concomitant]
     Indication: SUPPLEMENTATION THERAPY

REACTIONS (8)
  - BACK PAIN [None]
  - BLOOD PARATHYROID HORMONE INCREASED [None]
  - CEREBELLAR INFARCTION [None]
  - CEREBRAL INFARCTION [None]
  - INTERVERTEBRAL DISC PROTRUSION [None]
  - METASTASES TO SPINE [None]
  - NEUROPATHY PERIPHERAL [None]
  - SMALL INTESTINAL OBSTRUCTION [None]
